FAERS Safety Report 6043869-X (Version None)
Quarter: 2009Q1

REPORT INFORMATION
  Report Type: 
  Country: None (occurrence: None)
  Receive Date: 20090120
  Receipt Date: 20090114
  Transmission Date: 20090719
  Serious: Yes (Other)
  Sender: FDA-Public Use
  Company Number: GB-BRISTOL-MYERS SQUIBB COMPANY-13132733

PATIENT
  Age: 49 Year
  Sex: Female

DRUGS (14)
  1. CARBOPLATIN [Suspect]
     Indication: CHEMOTHERAPY
  2. CARBOPLATIN [Interacting]
     Indication: MALIGNANT HYDATIDIFORM MOLE
  3. CISPLATIN [Interacting]
     Indication: CHEMOTHERAPY
  4. CISPLATIN [Interacting]
     Indication: MALIGNANT HYDATIDIFORM MOLE
  5. ETOPOSIDE [Interacting]
     Indication: CHEMOTHERAPY
  6. ETOPOSIDE [Interacting]
     Indication: MALIGNANT HYDATIDIFORM MOLE
  7. TAXOL [Interacting]
     Indication: CHEMOTHERAPY
  8. TAXOL [Interacting]
     Indication: MALIGNANT HYDATIDIFORM MOLE
  9. GEMCITABINE [Interacting]
     Indication: CHEMOTHERAPY
  10. GEMCITABINE [Interacting]
     Indication: MALIGNANT HYDATIDIFORM MOLE
  11. PROPOFOL [Interacting]
     Indication: GENERAL ANAESTHESIA
     Route: 042
  12. FENTANYL [Interacting]
     Indication: GENERAL ANAESTHESIA
  13. MORPHINE [Interacting]
     Indication: GENERAL ANAESTHESIA
  14. PROPRANOLOL [Concomitant]
     Indication: ESSENTIAL HYPERTENSION

REACTIONS (2)
  - DRUG INTERACTION [None]
  - REVERSIBLE POSTERIOR LEUKOENCEPHALOPATHY SYNDROME [None]
